FAERS Safety Report 10645837 (Version 2)
Quarter: 2014Q4

REPORT INFORMATION
  Report Type: Spontaneous
  Country: TR (occurrence: TR)
  Receive Date: 20141211
  Receipt Date: 20141217
  Transmission Date: 20150529
  Serious: Yes (Hospitalization, Other)
  Sender: FDA-Public Use
  Company Number: TR-TEVA-527479ISR

PATIENT
  Age: 36 Year
  Sex: Male

DRUGS (4)
  1. CISPLATIN. [Suspect]
     Active Substance: CISPLATIN
     Indication: TESTICULAR MALIGNANT TERATOMA
     Dosage: 44 MILLIGRAM DAILY; 44MG DAILY; 2 CYCLES (FOR 5D DURING FIRST CYCLE)
     Route: 065
  2. ETOPOSIDE. [Concomitant]
     Active Substance: ETOPOSIDE
     Indication: TESTICULAR MALIGNANT TERATOMA
     Dosage: 200MG DAILY; DECREASED TO 160MG DURING 2ND CYCLE
     Route: 065
  3. ETOPOSIDE. [Concomitant]
     Active Substance: ETOPOSIDE
     Indication: TESTICULAR MALIGNANT TERATOMA
     Dosage: 160MG DAILY DURING 2ND CYCLE
     Route: 065
  4. BLEOMYCIN [Concomitant]
     Active Substance: BLEOMYCIN SULFATE
     Indication: TESTICULAR MALIGNANT TERATOMA
     Dosage: 30MG DAILY; 2 CYCLES
     Route: 065

REACTIONS (2)
  - Coronary artery thrombosis [Recovering/Resolving]
  - Myocardial infarction [Recovering/Resolving]
